FAERS Safety Report 4744395-8 (Version None)
Quarter: 2005Q3

REPORT INFORMATION
  Report Type: 
  Country: None (occurrence: None)
  Receive Date: 20050811
  Receipt Date: 20050811
  Transmission Date: 20060218
  Serious: Yes (Other)
  Sender: FDA-Public Use
  Company Number: None

PATIENT
  Age: 68 Year
  Sex: Female
  Weight: 52.1637 kg

DRUGS (1)
  1. TAXOL [Suspect]

REACTIONS (3)
  - CATHETER RELATED COMPLICATION [None]
  - PAIN [None]
  - VASCULAR CALCIFICATION [None]
